FAERS Safety Report 16438467 (Version 1)
Quarter: 2019Q2

REPORT INFORMATION
  Report Type: Spontaneous
  Country: FR (occurrence: FR)
  Receive Date: 20190617
  Receipt Date: 20190617
  Transmission Date: 20190711
  Serious: Yes (Hospitalization)
  Sender: FDA-Public Use
  Company Number: FR-ZYDUS-037612

PATIENT
  Age: 68 Year
  Sex: Male

DRUGS (9)
  1. DIAZEPAM. [Suspect]
     Active Substance: DIAZEPAM
     Indication: AFFECTIVE DISORDER
     Route: 048
     Dates: start: 20190426, end: 20190507
  2. CANDESARTAN/CANDESARTAN CILEXETIL [Concomitant]
  3. ENOXAPARINE SODIQUE ((MAMMIFERE/PORC/MUQUEUSE INTESTINALE)) [Concomitant]
     Active Substance: ENOXAPARIN SODIUM
  4. AMOXICILLIN SODIUM/CLAVULANATE POTASSIUM [Concomitant]
  5. VALPROIC ACID. [Suspect]
     Active Substance: VALPROIC ACID
     Indication: AFFECTIVE DISORDER
     Route: 048
     Dates: start: 2017, end: 20190510
  6. AMOXICILLIN. [Concomitant]
     Active Substance: AMOXICILLIN
  7. TROPATEPINE [Concomitant]
     Active Substance: TROPATEPINE
  8. OLANZAPINE. [Suspect]
     Active Substance: OLANZAPINE
     Indication: AFFECTIVE DISORDER
     Route: 048
     Dates: start: 2017, end: 20190509
  9. LOXAPINE. [Suspect]
     Active Substance: LOXAPINE
     Indication: AFFECTIVE DISORDER
     Route: 048
     Dates: start: 20190502, end: 20190507

REACTIONS (4)
  - Gait disturbance [Recovering/Resolving]
  - Confusional state [Recovering/Resolving]
  - Somnolence [Recovering/Resolving]
  - Speech disorder [Recovering/Resolving]

NARRATIVE: CASE EVENT DATE: 201904
